FAERS Safety Report 4449341-2 (Version None)
Quarter: 2004Q3

REPORT INFORMATION
  Report Type: 
  Country: None (occurrence: None)
  Receive Date: 20040913
  Receipt Date: 20040831
  Transmission Date: 20050211
  Serious: Yes (Hospitalization)
  Sender: FDA-Public Use
  Company Number: 140011USA

PATIENT
  Age: 33 Year
  Sex: Female

DRUGS (8)
  1. ADRUCIL [Suspect]
     Indication: BREAST CANCER
     Dosage: 90 MILLIGRAM DAILY INTRAVENOUS (NOS)
     Route: 042
     Dates: start: 20040331
  2. ELLENCE [Suspect]
     Dosage: 180 MILLIGRAM DAILY
     Dates: start: 20040331
  3. CYTOXAN [Suspect]
     Dosage: 900 MILLIGRAM DAILY
     Dates: start: 20040331
  4. AUGMENTIN [Concomitant]
  5. GATIFLOXACIN [Concomitant]
  6. ZOFRAN [Concomitant]
  7. COMPAZINE [Concomitant]
  8. PROPOXYPHENE [Concomitant]

REACTIONS (2)
  - BACTERIA BLOOD IDENTIFIED [None]
  - FEBRILE NEUTROPENIA [None]
